FAERS Safety Report 18242806 (Version 1)
Quarter: 2020Q3

REPORT INFORMATION
  Report Type: Spontaneous
  Country: US (occurrence: US)
  Receive Date: 20200908
  Receipt Date: 20200908
  Transmission Date: 20201103
  Serious: No
  Sender: FDA-Public Use
  Company Number: US-TARO-2020TAR00562

PATIENT

DRUGS (2)
  1. WARFARIN SODIUM TABLETS USP 2MG [Suspect]
     Active Substance: WARFARIN SODIUM
     Dosage: 1.5 TABLET (3 MG), DAILY (ON WEDNESDAY)
     Route: 048
     Dates: start: 202002
  2. WARFARIN SODIUM TABLETS USP 2MG [Suspect]
     Active Substance: WARFARIN SODIUM
     Indication: CARDIAC VALVE DISEASE
     Dosage: 1 TABLET (2MG), DAILY (EXCEPT WEDNESDAY)
     Route: 048
     Dates: start: 202002

REACTIONS (3)
  - Eating disorder [Not Recovered/Not Resolved]
  - International normalised ratio decreased [Not Recovered/Not Resolved]
  - Nasopharyngitis [Not Recovered/Not Resolved]

NARRATIVE: CASE EVENT DATE: 202002
